FAERS Safety Report 19933825 (Version 1)
Quarter: 2021Q4

REPORT INFORMATION
  Report Type: Spontaneous
  Country: US (occurrence: US)
  Receive Date: 20211008
  Receipt Date: 20211008
  Transmission Date: 20220303
  Serious: No
  Sender: FDA-Public Use
  Company Number: US-PALATIN TECHNOLOGIES, INC.-US-PALA-21-000103

PATIENT
  Sex: Female

DRUGS (1)
  1. VYLEESI [Suspect]
     Active Substance: BREMELANOTIDE ACETATE
     Indication: Libido decreased
     Dosage: 1.75 MILLIGRAM, PRN
     Route: 058

REACTIONS (3)
  - Medication error [Unknown]
  - Device defective [Unknown]
  - Drug ineffective [Unknown]
